FAERS Safety Report 26189883 (Version 2)
Quarter: 2025Q4

REPORT INFORMATION
  Report Type: Report from Study
  Country: GB (occurrence: None)
  Receive Date: 20251223
  Receipt Date: 20251226
  Transmission Date: 20260117
  Serious: Yes (Other)
  Sender: UCB
  Company Number: GB-UCBSA-2025081066

PATIENT
  Age: 80 Year

DRUGS (1)
  1. CERTOLIZUMAB PEGOL [Suspect]
     Active Substance: CERTOLIZUMAB PEGOL
     Indication: Rheumatoid arthritis
     Dosage: 200 MILLIGRAM, EV 4 WEEKS

REACTIONS (2)
  - Norovirus infection [Unknown]
  - Product dose omission issue [Unknown]
